FAERS Safety Report 6142201-0 (Version None)
Quarter: 2009Q2

REPORT INFORMATION
  Report Type: 
  Country: None (occurrence: None)
  Receive Date: 20090403
  Receipt Date: 20071129
  Transmission Date: 20091009
  Serious: Yes (Hospitalization, Other)
  Sender: FDA-Public Use
  Company Number: US-ASTRAZENECA-2006UW22246

PATIENT
  Age: 16586 Day
  Sex: Male
  Weight: 63.5 kg

DRUGS (1)
  1. SEROQUEL [Suspect]
     Indication: POST-TRAUMATIC STRESS DISORDER
     Route: 048
     Dates: start: 19990101, end: 20050101

REACTIONS (18)
  - ABDOMINAL PAIN [None]
  - ABDOMINAL PAIN UPPER [None]
  - BACTERAEMIA [None]
  - CELLULITIS [None]
  - DEPRESSION [None]
  - DIABETES MELLITUS [None]
  - DYSPNOEA [None]
  - DYSURIA [None]
  - HAEMATEMESIS [None]
  - HEPATITIS [None]
  - HEPATITIS VIRAL [None]
  - PAIN [None]
  - PANCREATIC PSEUDOCYST [None]
  - PANCREATITIS [None]
  - PSOAS ABSCESS [None]
  - RETROPERITONEAL ABSCESS [None]
  - VENOUS THROMBOSIS [None]
  - VOMITING [None]
